FAERS Safety Report 24350863 (Version 1)
Quarter: 2024Q3

REPORT INFORMATION
  Report Type: Spontaneous
  Country: US (occurrence: None)
  Receive Date: 20240920
  Receipt Date: 20240920
  Transmission Date: 20241017
  Serious: Yes (Other)
  Sender: Public
  Company Number: None

PATIENT
  Age: 71 Year
  Sex: Male
  Weight: 97.5 kg

DRUGS (1)
  1. DOTAREM [Suspect]
     Active Substance: GADOTERATE MEGLUMINE
     Indication: Magnetic resonance imaging
     Dosage: 20 ML INTRAVENOUS
     Route: 042
     Dates: start: 20240829, end: 20240829

REACTIONS (1)
  - Contrast media allergy [None]

NARRATIVE: CASE EVENT DATE: 20240829
